FAERS Safety Report 6925320-8 (Version None)
Quarter: 2010Q3

REPORT INFORMATION
  Report Type: 
  Country: None (occurrence: None)
  Receive Date: 20100811
  Receipt Date: 20100727
  Transmission Date: 20110219
  Serious: Yes (Hospitalization)
  Sender: FDA-Public Use
  Company Number: AUR-APL-2010-01899

PATIENT
  Age: 39 Year
  Sex: Male

DRUGS (3)
  1. MIRTAZAPINE 210MG [Suspect]
     Dosage: 17 TABS, ONE DOSE, ORAL
     Route: 048
  2. AMISULPRIDE 600MG [Suspect]
     Dosage: 17 TABS, ONE DOSE, ORAL
     Route: 048
  3. ZOPICLONE 52.5MG [Suspect]
     Dosage: 17 TABS, ONE DOSE, ORAL
     Route: 048

REACTIONS (6)
  - BLOOD CALCIUM DECREASED [None]
  - BLOOD POTASSIUM DECREASED [None]
  - BLOOD PRESSURE DECREASED [None]
  - COMA SCALE ABNORMAL [None]
  - ELECTROCARDIOGRAM QT PROLONGED [None]
  - MULTIPLE DRUG OVERDOSE INTENTIONAL [None]
